FAERS Safety Report 6154981-9 (Version None)
Quarter: 2009Q2

REPORT INFORMATION
  Report Type: 
  Country: None (occurrence: None)
  Receive Date: 20090410
  Receipt Date: 20090327
  Transmission Date: 20091009
  Serious: Yes (Death)
  Sender: FDA-Public Use
  Company Number: CFNT-338

PATIENT
  Sex: Female

DRUGS (6)
  1. MEIACT MS (CEFDITOREN PIVOXIL) [Suspect]
     Dosage: 400MG, 300MG BY MOUTH
  2. ACETAMINOPHEN [Suspect]
     Dosage: 1200-1600 MG P.O.
     Route: 048
     Dates: start: 20090107, end: 20090121
  3. SERRAPEPTASE [Concomitant]
  4. MEQUITAZINE [Concomitant]
  5. BETAMETHASONE [Concomitant]
  6. INSOGLADINE MALEATE [Concomitant]

REACTIONS (2)
  - OEDEMA MOUTH [None]
  - TOXIC EPIDERMAL NECROLYSIS [None]
